FAERS Safety Report 10147259 (Version 1)
Quarter: 2014Q2

REPORT INFORMATION
  Report Type: Spontaneous
  Country: US (occurrence: US)
  Receive Date: 20140501
  Receipt Date: 20140501
  Transmission Date: 20141212
  Serious: No
  Sender: FDA-Public Use
  Company Number: US-SA-2014SA001989

PATIENT
  Age: 62 Year
  Sex: Female
  Weight: 114.5 kg

DRUGS (2)
  1. HECTOROL [Suspect]
     Indication: PRODUCT USED FOR UNKNOWN INDICATION
     Dosage: DOSE:6 MICROGRAM(S)/MILLILITRE
     Route: 065
     Dates: start: 20131213, end: 20131229
  2. MIDODRINE [Concomitant]
     Indication: HYPOTENSION
     Route: 065
     Dates: start: 2011

REACTIONS (3)
  - Hypersensitivity [Recovered/Resolved]
  - Anxiety [Recovered/Resolved]
  - Pruritus [Recovered/Resolved]
